FAERS Safety Report 8603989-X (Version None)
Quarter: 2012Q3

REPORT INFORMATION
  Report Type: 
  Country: None (occurrence: None)
  Receive Date: 20120820
  Receipt Date: 20120808
  Transmission Date: 20120928
  Serious: No
  Sender: FDA-Public Use
  Company Number: US-BIOGENIDEC-2012BI012714

PATIENT
  Age: 55 Year
  Sex: Female

DRUGS (1)
  1. TYSABRI [Suspect]
     Indication: MULTIPLE SCLEROSIS
     Route: 042
     Dates: start: 20091013, end: 20120315

REACTIONS (4)
  - FUNGAL INFECTION [None]
  - IMMUNE SYSTEM DISORDER [None]
  - PHARYNGITIS STREPTOCOCCAL [None]
  - CYSTITIS [None]
